FAERS Safety Report 6588225-0 (Version None)
Quarter: 2010Q1

REPORT INFORMATION
  Report Type: 
  Country: None (occurrence: None)
  Receive Date: 20100212
  Receipt Date: 20100115
  Transmission Date: 20100710
  Serious: Yes (Other)
  Sender: FDA-Public Use
  Company Number: 004540

PATIENT
  Sex: Male

DRUGS (2)
  1. ISOKET (ISOKET) [Suspect]
     Dosage: (60 MG BID), (60 MG QD, 1 X  IN THE MORNING); 1 YEAR UNTIL 08/2009
     Dates: end: 20090801
  2. ISOKET (ISOKET) [Suspect]
     Dosage: (60 MG BID), (60 MG QD, 1 X  IN THE MORNING); 1 YEAR UNTIL 08/2009
     Dates: start: 20090801

REACTIONS (1)
  - PARALYSIS [None]
